FAERS Safety Report 16730682 (Version 1)
Quarter: 2019Q3

REPORT INFORMATION
  Report Type: Spontaneous
  Country: NL (occurrence: DE)
  Receive Date: 20190822
  Receipt Date: 20190822
  Transmission Date: 20191005
  Serious: Yes (Other)
  Sender: FDA-Public Use
  Company Number: DE-FRESENIUS KABI-FK201909174

PATIENT
  Sex: Female
  Weight: 60 kg

DRUGS (7)
  1. OXALIPLATIN (MANUFACTURER UNKNOWN) [Suspect]
     Active Substance: OXALIPLATIN
     Indication: DIFFUSE LARGE B-CELL LYMPHOMA
     Dosage: ACCORDING TO R-GEMOX REGIMEN, FURTHER LINE THERAPY, 4 CYCLES
     Route: 065
     Dates: start: 201711, end: 201801
  2. RITUXIMAB. [Suspect]
     Active Substance: RITUXIMAB
     Dosage: ACCORDING TO R-GEMOX REGIMEN, FURTHER LINE THERAPY, 4 CYCLES
     Route: 065
     Dates: start: 201711, end: 201801
  3. GEMCITABINE. [Suspect]
     Active Substance: GEMCITABINE
     Indication: DIFFUSE LARGE B-CELL LYMPHOMA
     Dosage: ACCORDING TO R-GEMOX REGIMEN, FURTHER LINE THERAPY, 4 CYCLES
     Route: 065
     Dates: start: 201711, end: 201801
  4. KTE C19 [Suspect]
     Active Substance: AXICABTAGENE CILOLEUCEL
     Indication: DIFFUSE LARGE B-CELL LYMPHOMA
     Dosage: FURTHER LINE THERAPY, 1 CYCLE
     Route: 065
     Dates: start: 201901, end: 201901
  5. BENDAMUSTINE HYDROCHLORIDE (MANUFACTURER UNKOWN) [Suspect]
     Active Substance: BENDAMUSTINE HYDROCHLORIDE
     Indication: DIFFUSE LARGE B-CELL LYMPHOMA
     Dosage: ACCORDING TO R-BENDAMUSTINE REGIMEN, 2ND LINE THERAPY, 2 CYCLES
     Route: 065
     Dates: start: 201708, end: 201710
  6. RITUXIMAB. [Suspect]
     Active Substance: RITUXIMAB
     Indication: DIFFUSE LARGE B-CELL LYMPHOMA
     Dosage: ACCORDING TO R-DHAP REGIMEN, FURTHER LINE THERAPY, 3 CYCLES
     Route: 065
     Dates: start: 201806, end: 201808
  7. RITUXIMAB. [Suspect]
     Active Substance: RITUXIMAB
     Dosage: ACCORDING TO R-BENDAMUSTINE REGIMEN, 2ND LINE THERAPY, 2 CYCLES
     Route: 065
     Dates: start: 201708, end: 201710

REACTIONS (1)
  - Haematotoxicity [Recovered/Resolved]
